FAERS Safety Report 10251852 (Version 1)
Quarter: 2014Q2

REPORT INFORMATION
  Report Type: Spontaneous
  Country: US (occurrence: US)
  Receive Date: 20140623
  Receipt Date: 20140623
  Transmission Date: 20141212
  Serious: Yes (Death, Hospitalization, Other)
  Sender: FDA-Public Use
  Company Number: US-BRISTOL-MYERS SQUIBB COMPANY-20989547

PATIENT
  Age: 64 Year
  Sex: Female
  Weight: 97.51 kg

DRUGS (19)
  1. ABILIFY [Suspect]
     Route: 048
  2. ABILIFY MAINTENA INJECTION [Suspect]
     Indication: SCHIZOAFFECTIVE DISORDER BIPOLAR TYPE
     Dosage: REGIMEN #2 ON 09-SEP-2013?REGIMEN #3 ON 20-JAN-2014
     Route: 030
     Dates: start: 20130809
  3. DEPAKOTE [Concomitant]
  4. STELAZINE [Concomitant]
     Dates: start: 201311
  5. ATIVAN [Concomitant]
     Dates: start: 201311
  6. NOVOLIN 70/30 [Concomitant]
  7. NEXIUM [Concomitant]
  8. FUROSEMIDE [Concomitant]
  9. COZAAR [Concomitant]
  10. MELOXICAM [Concomitant]
  11. CYMBALTA [Concomitant]
  12. CHRONULAC [Concomitant]
  13. CLONIDINE [Concomitant]
  14. APRESOLINE [Concomitant]
  15. TOPROL [Concomitant]
  16. NORVASC [Concomitant]
  17. FLUPHENAZINE HCL [Concomitant]
  18. NAMENDA [Concomitant]
  19. HUMULIN 70/30 [Concomitant]

REACTIONS (9)
  - Death [Fatal]
  - Transient ischaemic attack [Unknown]
  - Pneumonia [Unknown]
  - Renal disorder [Unknown]
  - Psychotic disorder [Unknown]
  - Depression [Unknown]
  - Anxiety [Unknown]
  - Dementia [Unknown]
  - Agitation [Unknown]
